FAERS Safety Report 18822283 (Version 4)
Quarter: 2021Q4

REPORT INFORMATION
  Report Type: Report from Study
  Country: CA (occurrence: CA)
  Receive Date: 20210202
  Receipt Date: 20211027
  Transmission Date: 20220304
  Serious: Yes (Other)
  Sender: FDA-Public Use
  Company Number: NVSC2021CA016782

PATIENT
  Age: 63 Year
  Sex: Female
  Weight: 80.2 kg

DRUGS (11)
  1. SIPONIMOD [Suspect]
     Active Substance: SIPONIMOD
     Indication: Multiple sclerosis
     Dosage: 2.5 TO 2 MG TITRATION, QD
     Route: 048
     Dates: start: 20131112, end: 20131118
  2. SIPONIMOD [Suspect]
     Active Substance: SIPONIMOD
     Dosage: 2 MG DE
     Route: 048
     Dates: start: 20131119, end: 20160222
  3. SIPONIMOD [Suspect]
     Active Substance: SIPONIMOD
     Indication: Multiple sclerosis
     Dosage: 2.5 TO 2 MG TITRATION, QD
     Route: 065
     Dates: start: 20160226, end: 20160303
  4. SIPONIMOD [Suspect]
     Active Substance: SIPONIMOD
     Dosage: 2 MG DE
     Route: 048
     Dates: start: 20160304, end: 20210121
  5. MAGNESIUM [Concomitant]
     Active Substance: MAGNESIUM
     Indication: Hypovitaminosis
     Dosage: 75 MG, ONCE DAILY
     Route: 048
     Dates: start: 20110101
  6. SPIRONOLACTONE [Concomitant]
     Active Substance: SPIRONOLACTONE
     Indication: Hypertrichosis
     Dosage: 100 MG, ONCE DAILY
     Route: 048
     Dates: start: 20170716
  7. ELIDEL [Concomitant]
     Active Substance: PIMECROLIMUS
     Indication: Seborrhoeic dermatitis
     Dosage: UNK
     Route: 061
     Dates: start: 20190119
  8. VITAMIN D3 [Concomitant]
     Active Substance: CHOLECALCIFEROL
     Indication: Hypovitaminosis
     Dosage: 4000 UL, ONCE DAILY
     Route: 048
     Dates: start: 20190206
  9. VITAMIN B12 [Concomitant]
     Active Substance: CYANOCOBALAMIN
     Indication: Hypovitaminosis
     Dosage: 1000 UL, ONCE DAILY
     Route: 048
     Dates: start: 20190206
  10. CORTISONE [Concomitant]
     Active Substance: CORTISONE
     Indication: Pain
     Dosage: 1 MG, ONCE DAILY
     Route: 065
     Dates: start: 20200303
  11. MYRBETRIQ [Concomitant]
     Active Substance: MIRABEGRON
     Indication: Neurogenic bladder
     Dosage: 50 MG, ONCE DAILY
     Route: 048
     Dates: start: 20160524

REACTIONS (1)
  - Malignant melanoma in situ [Recovered/Resolved]

NARRATIVE: CASE EVENT DATE: 20210107
